FAERS Safety Report 21472990 (Version 1)
Quarter: 2022Q4

REPORT INFORMATION
  Report Type: Report from Study
  Country: US (occurrence: US)
  Receive Date: 20221018
  Receipt Date: 20221018
  Transmission Date: 20230113
  Serious: Yes (Hospitalization)
  Sender: FDA-Public Use
  Company Number: US-OTSUKA PHARMACEUTICAL NETHERLANDS B.V.-AUR-002388

PATIENT
  Sex: Female

DRUGS (2)
  1. LUPKYNIS [Suspect]
     Active Substance: VOCLOSPORIN
     Indication: Product used for unknown indication
     Dosage: 15.8 MILLIGRAM, BID
     Route: 048
  2. MYCOPHENOLIC ACID [Suspect]
     Active Substance: MYCOPHENOLIC ACID
     Indication: Product used for unknown indication
     Dosage: UNK

REACTIONS (6)
  - Retching [Unknown]
  - Nausea [Unknown]
  - Vomiting [Unknown]
  - Inflammatory bowel disease [Unknown]
  - Internal hernia [Unknown]
  - Abdominal pain [Unknown]
